FAERS Safety Report 4695580-5 (Version None)
Quarter: 2005Q2

REPORT INFORMATION
  Report Type: 
  Country: None (occurrence: None)
  Receive Date: 20050524
  Receipt Date: 20050512
  Transmission Date: 20051028
  Serious: Yes (Hospitalization)
  Sender: FDA-Public Use
  Company Number: 2005AC00729

PATIENT
  Age: 44 Year
  Sex: Male

DRUGS (5)
  1. QUETIAPINE FUMARATE [Suspect]
     Indication: BIPOLAR DISORDER
     Route: 048
  2. QUETIAPINE FUMARATE [Suspect]
     Route: 048
  3. RISPERIDONE [Suspect]
     Indication: BIPOLAR DISORDER
  4. RISPERIDONE [Suspect]
     Dosage: BETWEEN 90 MG TO 120 MG
  5. LITHIUM CARBONATE [Concomitant]
     Indication: BIPOLAR DISORDER

REACTIONS (4)
  - HYPOKALAEMIA [None]
  - INTENTIONAL MISUSE [None]
  - OVERDOSE [None]
  - SUICIDE ATTEMPT [None]
